FAERS Safety Report 9451045 (Version 1)
Quarter: 2013Q3

REPORT INFORMATION
  Report Type: Spontaneous
  Country: FR (occurrence: None)
  Receive Date: 20130807
  Receipt Date: 20130807
  Transmission Date: 20140515
  Serious: Yes (Death, Other)
  Sender: FDA-Public Use
  Company Number: 2013P1013579

PATIENT
  Sex: 0

DRUGS (1)
  1. ERYTHROMYCIN [Suspect]

REACTIONS (3)
  - Torsade de pointes [None]
  - Ventricular fibrillation [None]
  - Sudden death [None]
